FAERS Safety Report 11960258 (Version 2)
Quarter: 2016Q1

REPORT INFORMATION
  Report Type: Report from Study
  Country: US (occurrence: US)
  Receive Date: 20160126
  Receipt Date: 20160129
  Transmission Date: 20160526
  Serious: Yes (Other)
  Sender: FDA-Public Use
  Company Number: US-ABBVIE-15K-163-1373597-00

PATIENT
  Age: 63 Year
  Sex: Female

DRUGS (2)
  1. CEPACOL [Suspect]
     Active Substance: BENZOCAINE
     Indication: NASOPHARYNGITIS
     Route: 065
  2. HUMIRA [Suspect]
     Active Substance: ADALIMUMAB
     Indication: ANKYLOSING SPONDYLITIS
     Route: 065

REACTIONS (8)
  - Upper respiratory tract infection [Recovering/Resolving]
  - Heart rate increased [Recovering/Resolving]
  - Cough [Unknown]
  - Syncope [Recovered/Resolved]
  - Facial bones fracture [Unknown]
  - Rhinorrhoea [Unknown]
  - Oropharyngeal pain [Unknown]
  - Sinus congestion [Unknown]

NARRATIVE: CASE EVENT DATE: 201412
